FAERS Safety Report 16831718 (Version 1)
Quarter: 2019Q4

REPORT INFORMATION
  Report Type: Spontaneous
  Country: US (occurrence: US)
  Receive Date: 20190919
  Receipt Date: 20190919
  Transmission Date: 20200122
  Serious: Yes (Life-Threatening, Hospitalization, Disabling, Other)
  Sender: FDA-Public Use
  Company Number: None

PATIENT
  Age: 66 Year
  Sex: Female
  Weight: 82.35 kg

DRUGS (13)
  1. EMERGEN C [Concomitant]
     Active Substance: MINERALS\VITAMINS
  2. FONDAPARINUX [Suspect]
     Active Substance: FONDAPARINUX
     Indication: HYPERCOAGULATION
     Dosage: ?          QUANTITY:1 INJECTION(S);?
     Route: 058
     Dates: start: 20190819, end: 20190829
  3. FONDAPARINUX [Concomitant]
     Active Substance: FONDAPARINUX
  4. CHLORHEXIDINE [Concomitant]
     Active Substance: CHLORHEXIDINE
  5. ACETAMINOPHEN. [Concomitant]
     Active Substance: ACETAMINOPHEN
  6. TRAMADOL. [Concomitant]
     Active Substance: TRAMADOL
  7. PREDNISONE. [Concomitant]
     Active Substance: PREDNISONE
  8. CALCIUM CARBONATE. [Concomitant]
     Active Substance: CALCIUM CARBONATE
  9. DIPHENHYDRAMINE. [Concomitant]
     Active Substance: DIPHENHYDRAMINE
  10. DICLOFENAC [Concomitant]
     Active Substance: DICLOFENAC
  11. FONDAPARINUX [Suspect]
     Active Substance: FONDAPARINUX
     Indication: COAGULOPATHY
     Dosage: ?          QUANTITY:1 INJECTION(S);?
     Route: 058
     Dates: start: 20190819, end: 20190829
  12. FAMOTIDINE. [Concomitant]
     Active Substance: FAMOTIDINE
  13. NEBIVOLOL. [Concomitant]
     Active Substance: NEBIVOLOL

REACTIONS (11)
  - Deep vein thrombosis [None]
  - Fall [None]
  - Drug ineffective [None]
  - Manufacturing materials issue [None]
  - Therapeutic response decreased [None]
  - Fibrin D dimer increased [None]
  - Anaphylactic reaction [None]
  - Product quality issue [None]
  - Laboratory test interference [None]
  - Product contamination microbial [None]
  - Pulmonary embolism [None]

NARRATIVE: CASE EVENT DATE: 20190822
